FAERS Safety Report 14291674 (Version 1)
Quarter: 2017Q4

REPORT INFORMATION
  Report Type: Not Available
  Country: FR (occurrence: FR)
  Receive Date: 20171215
  Receipt Date: 20171215
  Transmission Date: 20180321
  Serious: Yes (Hospitalization)
  Sender: FDA-Public Use
  Company Number: FR-SYNTHON BV-NL01PV16_45568

PATIENT
  Age: 22 Year
  Sex: Female

DRUGS (9)
  1. ABILIFY [Suspect]
     Active Substance: ARIPIPRAZOLE
     Indication: PRODUCT USED FOR UNKNOWN INDICATION
     Dosage: ONE OR TWO TABLETS PER DAY, DOSE-10 TAB IN SINGLE DOSE
     Route: 065
     Dates: end: 201512
  2. ATARAX [Suspect]
     Active Substance: HYDROXYZINE HYDROCHLORIDE
     Indication: PRODUCT USED FOR UNKNOWN INDICATION
     Dosage: UNK,DOSE-17 TAB IN SINGLE DOSE
     Route: 065
     Dates: end: 201512
  3. ATARAX [Suspect]
     Active Substance: HYDROXYZINE HYDROCHLORIDE
     Dosage: 17 TAB, ONE TIME DOSE
     Route: 048
     Dates: start: 20160716, end: 20160716
  4. PRAZEPAM [Suspect]
     Active Substance: PRAZEPAM
     Indication: PRODUCT USED FOR UNKNOWN INDICATION
     Dosage: UNK, 29 TAB IN SINGLE DOSE
     Route: 065
     Dates: end: 201512
  5. PRAZEPAM [Suspect]
     Active Substance: PRAZEPAM
     Dosage: 29 TAB, ONE TIME DOSE
     Route: 048
     Dates: start: 20160716, end: 20160716
  6. SERTRALINE [Suspect]
     Active Substance: SERTRALINE HYDROCHLORIDE
     Dosage: 50 MG, BID
     Route: 065
     Dates: end: 201512
  7. LEVOCETIRIZINE DIHYDROCHLORIDE. [Suspect]
     Active Substance: LEVOCETIRIZINE DIHYDROCHLORIDE
     Indication: PRODUCT USED FOR UNKNOWN INDICATION
     Dosage: UNK
     Route: 065
     Dates: start: 20160716, end: 20160716
  8. ABILIFY [Suspect]
     Active Substance: ARIPIPRAZOLE
     Dosage: 100 MG, DOSE-10 TAB IN SINGLE DOSE
     Route: 048
     Dates: start: 20160716, end: 20160716
  9. SERTRALINE [Suspect]
     Active Substance: SERTRALINE HYDROCHLORIDE
     Indication: PRODUCT USED FOR UNKNOWN INDICATION
     Dosage: UNK
     Route: 065
     Dates: start: 20160716, end: 20160716

REACTIONS (5)
  - Somnolence [Recovered/Resolved]
  - Hypotension [Recovered/Resolved]
  - Heart rate decreased [Recovered/Resolved]
  - Hypotonia [Recovered/Resolved]
  - Overdose [Recovered/Resolved]

NARRATIVE: CASE EVENT DATE: 20160716
